FAERS Safety Report 15549140 (Version 2)
Quarter: 2019Q1

REPORT INFORMATION
  Report Type: Report from Study
  Country: IE (occurrence: IE)
  Receive Date: 20181025
  Receipt Date: 20190116
  Transmission Date: 20190417
  Serious: Yes (Hospitalization, Other)
  Sender: FDA-Public Use
  Company Number: IE-BRISTOL-MYERS SQUIBB COMPANY-BMS-2018-080906

PATIENT
  Age: 79 Year
  Sex: Male

DRUGS (1)
  1. NIVOLUMAB [Suspect]
     Active Substance: NIVOLUMAB
     Indication: METASTATIC RENAL CELL CARCINOMA
     Dosage: UNK UNK, Q2WK
     Route: 065
     Dates: start: 20180814

REACTIONS (5)
  - Laryngeal oedema [Recovering/Resolving]
  - Decreased appetite [Not Recovered/Not Resolved]
  - Pruritus [Recovered/Resolved]
  - Fatigue [Unknown]
  - Rash papular [Recovering/Resolving]

NARRATIVE: CASE EVENT DATE: 20180823
